FAERS Safety Report 6453637-2 (Version None)
Quarter: 2009Q4

REPORT INFORMATION
  Report Type: 
  Country: None (occurrence: None)
  Receive Date: 20091124
  Receipt Date: 20091112
  Transmission Date: 20100525
  Serious: Yes (Other)
  Sender: FDA-Public Use
  Company Number: PHHY2009MX49949

PATIENT
  Age: 73 Year
  Sex: Female

DRUGS (1)
  1. RASILEZ [Suspect]
     Indication: HYPERTENSION
     Dosage: 300 MG, 1 TABLET PER DAY
     Route: 048
     Dates: start: 20081201, end: 20090801

REACTIONS (5)
  - CARDIAC DISORDER [None]
  - CARDIAC FAILURE [None]
  - LIVER INJURY [None]
  - LUNG DISORDER [None]
  - RENAL DISORDER [None]
